FAERS Safety Report 4418594-9 (Version None)
Quarter: 2004Q3

REPORT INFORMATION
  Report Type: 
  Country: None (occurrence: None)
  Receive Date: 20040809
  Receipt Date: 20021230
  Transmission Date: 20050211
  Serious: No
  Sender: FDA-Public Use
  Company Number: US-GLAXOSMITHKLINE-A0390895A

PATIENT
  Sex: Male

DRUGS (1)
  1. PAXIL [Suspect]

REACTIONS (14)
  - ADVERSE EVENT [None]
  - ANGER [None]
  - DISTURBANCE IN ATTENTION [None]
  - DRUG WITHDRAWAL SYNDROME [None]
  - FEELING ABNORMAL [None]
  - HYPERSOMNIA [None]
  - MEMORY IMPAIRMENT [None]
  - MENTAL DISORDER [None]
  - MOOD SWINGS [None]
  - PARANOIA [None]
  - PSYCHOTIC DISORDER [None]
  - SENSORY DISTURBANCE [None]
  - THINKING ABNORMAL [None]
  - VISION BLURRED [None]
